FAERS Safety Report 9375456 (Version 1)
Quarter: 2013Q2

REPORT INFORMATION
  Report Type: Spontaneous
  Country: FR (occurrence: FR)
  Receive Date: 20130628
  Receipt Date: 20130628
  Transmission Date: 20140414
  Serious: Yes (Life-Threatening, Hospitalization)
  Sender: FDA-Public Use
  Company Number: FR-GLAXOSMITHKLINE-B0900490A

PATIENT
  Age: 67 Year
  Sex: Female

DRUGS (13)
  1. ZOPHREN [Suspect]
     Indication: PREMEDICATION
     Dosage: 8MG CYCLIC
     Route: 042
     Dates: start: 20130528, end: 20130528
  2. ENDOXAN [Suspect]
     Indication: VASCULITIS
     Dosage: 1G CYCLIC
     Route: 042
     Dates: start: 20130528, end: 20130528
  3. UROMITEXAN [Concomitant]
     Indication: PROPHYLAXIS
     Dosage: 300MG CYCLIC
     Route: 042
     Dates: start: 20130528, end: 20130528
  4. ALPRAZOLAM [Concomitant]
     Dosage: .5MG SINGLE DOSE
     Route: 048
     Dates: start: 20130528
  5. KARDEGIC [Concomitant]
     Dosage: 75MG PER DAY
     Route: 048
  6. IRBESARTAN [Concomitant]
     Dosage: 150MG PER DAY
     Route: 048
  7. AMLOR [Concomitant]
     Dosage: 10MG PER DAY
     Route: 048
  8. CORDARONE [Concomitant]
     Dosage: 200MG PER DAY
     Route: 048
  9. INEGY [Concomitant]
     Dosage: 10MG PER DAY
     Route: 048
  10. LASILIX [Concomitant]
     Dosage: 40MG PER DAY
     Route: 048
  11. AIROMIR [Concomitant]
     Dosage: 200MCG TWICE PER DAY
     Route: 055
  12. LEXOMIL [Concomitant]
     Route: 065
  13. ESOMEPRAZOLE [Concomitant]
     Route: 065

REACTIONS (3)
  - Respiratory distress [Recovered/Resolved]
  - Bronchospasm [Recovered/Resolved]
  - Diarrhoea [Unknown]
